FAERS Safety Report 16240879 (Version 4)
Quarter: 2019Q4

REPORT INFORMATION
  Report Type: Spontaneous
  Country: US (occurrence: US)
  Receive Date: 20190425
  Receipt Date: 20191125
  Transmission Date: 20200122
  Serious: Yes (Other)
  Sender: FDA-Public Use
  Company Number: US-ASTRAZENECA-2019SE10226

PATIENT
  Age: 66 Year
  Sex: Female
  Weight: 93 kg

DRUGS (36)
  1. NEXIUM [Suspect]
     Active Substance: ESOMEPRAZOLE MAGNESIUM
     Indication: GASTROOESOPHAGEAL REFLUX DISEASE
     Route: 048
     Dates: start: 2009
  2. PANTOPRAZOLE [Suspect]
     Active Substance: PANTOPRAZOLE
     Dosage: GENERIC
     Route: 065
  3. AVAPRO [Concomitant]
     Active Substance: IRBESARTAN
  4. DIAZEPAM. [Concomitant]
     Active Substance: DIAZEPAM
  5. TYLENOL [Concomitant]
     Active Substance: ACETAMINOPHEN
     Indication: ANALGESIC THERAPY
     Dates: start: 2000
  6. CARAFATE [Concomitant]
     Active Substance: SUCRALFATE
  7. OMEPRAZOLE. [Suspect]
     Active Substance: OMEPRAZOLE
     Dosage: GENERIC
     Route: 065
  8. PANTOPRAZOLE [Suspect]
     Active Substance: PANTOPRAZOLE
     Route: 065
  9. FUROSEMIDE. [Concomitant]
     Active Substance: FUROSEMIDE
  10. ADVAIR HFA [Concomitant]
     Active Substance: FLUTICASONE PROPIONATE\SALMETEROL XINAFOATE
  11. FENOFIBRATE. [Concomitant]
     Active Substance: FENOFIBRATE
  12. METRONIDAZOLE. [Concomitant]
     Active Substance: METRONIDAZOLE
  13. OMEPRAZOLE PLUS SODIUM [Suspect]
     Active Substance: OMEPRAZOLE\SODIUM BICARBONATE
     Route: 065
  14. AZITHROMYCIN ANHYDROUS. [Concomitant]
     Active Substance: AZITHROMYCIN ANHYDROUS
  15. NEXIUM [Suspect]
     Active Substance: ESOMEPRAZOLE MAGNESIUM
     Indication: GASTROOESOPHAGEAL REFLUX DISEASE
     Route: 048
  16. HYDROCHLOROTHIAZIDE. [Concomitant]
     Active Substance: HYDROCHLOROTHIAZIDE
  17. HYDROCODONE [Concomitant]
     Active Substance: HYDROCODONE
     Indication: PAIN
     Dates: start: 20190104
  18. KAPIDEX [Concomitant]
     Active Substance: DEXLANSOPRAZOLE
  19. DICYCLOMINE [Concomitant]
     Active Substance: DICYCLOMINE HYDROCHLORIDE
  20. DEXILANT [Suspect]
     Active Substance: DEXLANSOPRAZOLE
     Indication: GASTROOESOPHAGEAL REFLUX DISEASE
     Route: 065
     Dates: start: 2009
  21. ALPRAZOLAM. [Concomitant]
     Active Substance: ALPRAZOLAM
  22. OMEPRAZOLE. [Suspect]
     Active Substance: OMEPRAZOLE
     Route: 048
  23. AMMONIUM LACTATE. [Concomitant]
     Active Substance: AMMONIUM LACTATE
  24. PREDNISOLONE. [Concomitant]
     Active Substance: PREDNISOLONE
  25. GLIPIZIDE. [Concomitant]
     Active Substance: GLIPIZIDE
     Indication: BLOOD GLUCOSE ABNORMAL
  26. MELOXICAM. [Concomitant]
     Active Substance: MELOXICAM
  27. TRIAMCINOLONE [Concomitant]
     Active Substance: TRIAMCINOLONE
  28. PREVACID [Suspect]
     Active Substance: LANSOPRAZOLE
     Indication: GASTROOESOPHAGEAL REFLUX DISEASE
     Route: 065
     Dates: start: 2009
  29. OMEPRAZOLE PLUS SODIUM [Suspect]
     Active Substance: OMEPRAZOLE\SODIUM BICARBONATE
     Dosage: GENERIC
     Route: 065
  30. DILTIAZEM. [Concomitant]
     Active Substance: DILTIAZEM
     Dates: start: 20090213
  31. DOXYCYCLINE. [Concomitant]
     Active Substance: DOXYCYCLINE
  32. PRAVASTATIN. [Concomitant]
     Active Substance: PRAVASTATIN
     Indication: BLOOD CHOLESTEROL
     Dates: start: 20090102
  33. NEXIUM [Suspect]
     Active Substance: ESOMEPRAZOLE MAGNESIUM
     Indication: GASTROOESOPHAGEAL REFLUX DISEASE
     Dosage: GENERIC
     Route: 065
  34. DEXILANT [Suspect]
     Active Substance: DEXLANSOPRAZOLE
     Indication: GASTROOESOPHAGEAL REFLUX DISEASE
     Dosage: GENERIC
     Route: 065
  35. METFORMIN [Concomitant]
     Active Substance: METFORMIN HYDROCHLORIDE
  36. ZANTAC 150 (RANITIDINE HYDROCHLORIDE) [Concomitant]
     Active Substance: RANITIDINE HYDROCHLORIDE
     Dates: start: 2017

REACTIONS (4)
  - Renal failure [Not Recovered/Not Resolved]
  - Chronic kidney disease [Unknown]
  - Renal injury [Unknown]
  - Rebound acid hypersecretion [Unknown]

NARRATIVE: CASE EVENT DATE: 2013
